FAERS Safety Report 13885726 (Version 1)
Quarter: 2017Q3

REPORT INFORMATION
  Report Type: Report from Study
  Country: BR (occurrence: BR)
  Receive Date: 20170821
  Receipt Date: 20170821
  Transmission Date: 20171127
  Serious: Yes (Hospitalization)
  Sender: FDA-Public Use
  Company Number: PHHY2017BR121710

PATIENT
  Sex: Male
  Weight: 90 kg

DRUGS (4)
  1. DIOVAN [Suspect]
     Active Substance: VALSARTAN
     Indication: HYPERTENSION
     Dosage: UNK
     Route: 048
  2. DIOVAN HCT [Suspect]
     Active Substance: HYDROCHLOROTHIAZIDE\VALSARTAN
     Indication: HYPERTENSION
     Dosage: 1 DF (HYDROCHLOROTHIAZIDE 320 MG AND VALSARTAN 12.5 MG), QD (2 YEARS AGO)
     Route: 065
     Dates: end: 20170608
  3. NATRILIX [Concomitant]
     Active Substance: INDAPAMIDE
     Indication: HYPERTENSION
     Route: 048
  4. DIOVAN AMLO FIX [Suspect]
     Active Substance: AMLODIPINE\VALSARTAN
     Indication: HYPERTENSION
     Dosage: 1 DF (AMLODIPINE 5 MG ANG VALSARTAN 320 MG), QD
     Route: 048

REACTIONS (6)
  - Chronic obstructive pulmonary disease [Unknown]
  - Lung disorder [Unknown]
  - Weight loss poor [Unknown]
  - Dyspnoea [Unknown]
  - Pneumonia [Unknown]
  - Obesity [Unknown]
